FAERS Safety Report 4558970-7 (Version None)
Quarter: 2005Q1

REPORT INFORMATION
  Report Type: 
  Country: None (occurrence: None)
  Receive Date: 20050121
  Receipt Date: 20050121
  Transmission Date: 20050727
  Serious: Yes (Hospitalization)
  Sender: FDA-Public Use
  Company Number: None

PATIENT
  Age: 70 Year
  Sex: Male
  Weight: 123.4 kg

DRUGS (24)
  1. ASPIRIN [Suspect]
  2. ASPIRIN [Concomitant]
  3. ATORVASTATIN CALCIUM [Concomitant]
  4. CARVEDILOL [Concomitant]
  5. CLOPIDOGREL BISULFATE [Concomitant]
  6. LANOXIN [Concomitant]
  7. ENALAPRIL MALEATE [Concomitant]
  8. FLUDROCORTISONE ACETATE [Concomitant]
  9. IBUPROFEN [Concomitant]
  10. PAROXETINE HCL [Concomitant]
  11. THEOPHYLLINE (INWOOD) [Concomitant]
  12. GLYBURIDE [Concomitant]
  13. PREDNISONE [Concomitant]
  14. LEVOTHYROXINE TAB [Concomitant]
  15. DEXTROSE [Concomitant]
  16. OMEPRAZOLE [Concomitant]
  17. LORAZEPAM [Concomitant]
  18. FUROSEMIDE INJ, SOLN [Concomitant]
  19. OXYCODONE TAB [Concomitant]
  20. HUMULIN R [Concomitant]
  21. GLYBURIDE TAB [Concomitant]
  22. GUAIFENESIN [Concomitant]
  23. IPATROPIUM BROMIDE [Concomitant]
  24. ALBUTEROL [Concomitant]

REACTIONS (1)
  - GASTROINTESTINAL HAEMORRHAGE [None]
